FAERS Safety Report 17632705 (Version 1)
Quarter: 2020Q2

REPORT INFORMATION
  Report Type: Spontaneous
  Country: JP (occurrence: JP)
  Receive Date: 20200406
  Receipt Date: 20200406
  Transmission Date: 20200713
  Serious: Yes (Death, Hospitalization, Other)
  Sender: FDA-Public Use
  Company Number: JP-BAYER-2014-125226

PATIENT
  Age: 44 Year
  Sex: Female
  Weight: 50.79 kg

DRUGS (4)
  1. LANSOPRAZOLE. [Concomitant]
     Active Substance: LANSOPRAZOLE
     Dosage: DAILY DOSE 15 MG
     Route: 048
  2. STIVARGA [Suspect]
     Active Substance: REGORAFENIB
     Indication: RECTAL CANCER
     Dosage: 160 MG, QD
     Route: 048
     Dates: start: 20140704, end: 20140724
  3. STIVARGA [Suspect]
     Active Substance: REGORAFENIB
     Indication: COLON CANCER
  4. LYRICA [Concomitant]
     Active Substance: PREGABALIN
     Dosage: DAILY DOSE 150 MG
     Route: 048

REACTIONS (7)
  - Liver disorder [None]
  - Alanine aminotransferase increased [None]
  - Hepatic failure [Fatal]
  - Hepatic encephalopathy [None]
  - Palmar-plantar erythrodysaesthesia syndrome [Recovering/Resolving]
  - Platelet count decreased [Recovered/Resolved]
  - Jaundice [Fatal]

NARRATIVE: CASE EVENT DATE: 2014
